FAERS Safety Report 18170478 (Version 1)
Quarter: 2020Q3

REPORT INFORMATION
  Report Type: Spontaneous
  Country: CN (occurrence: CN)
  Receive Date: 20200819
  Receipt Date: 20200819
  Transmission Date: 20201103
  Serious: Yes (Other)
  Sender: FDA-Public Use
  Company Number: CN-PFIZER INC-2020317564

PATIENT
  Age: 6 Year
  Sex: Female
  Weight: 22.5 kg

DRUGS (3)
  1. SOLU?MEDROL [Suspect]
     Active Substance: METHYLPREDNISOLONE SODIUM SUCCINATE
     Indication: MYASTHENIA GRAVIS
     Dosage: 40 MG, 1X/DAY
     Route: 041
     Dates: start: 20200729, end: 20200802
  2. MEDROL [Suspect]
     Active Substance: METHYLPREDNISOLONE
     Indication: MYASTHENIA GRAVIS
     Dosage: 20 MG, 1X/DAY
     Route: 048
     Dates: start: 20200802, end: 20200804
  3. SODIUM CHLORIDE + GLUCOSE [Concomitant]
     Indication: VEHICLE SOLUTION USE
     Dosage: 100 ML, 2X/DAY
     Route: 041
     Dates: start: 20200729, end: 20200802

REACTIONS (3)
  - Blood glucose increased [Recovering/Resolving]
  - Off label use [Unknown]
  - Product use in unapproved indication [Unknown]

NARRATIVE: CASE EVENT DATE: 20200803
